FAERS Safety Report 14196200 (Version 1)
Quarter: 2017Q4

REPORT INFORMATION
  Report Type: Spontaneous
  Country: US (occurrence: None)
  Receive Date: 20171116
  Receipt Date: 20171116
  Transmission Date: 20180321
  Serious: No
  Sender: FDA-Public Use
  Company Number: None

PATIENT
  Age: 78 Year
  Sex: Female
  Weight: 95.25 kg

DRUGS (9)
  1. LISINOPRIL. [Concomitant]
     Active Substance: LISINOPRIL
  2. VITAMIN D3 [Concomitant]
     Active Substance: CHOLECALCIFEROL
  3. ATENOLOL 25MG TAB ZYP [Suspect]
     Active Substance: ATENOLOL
     Indication: CARDIAC DISORDER
     Dosage: 2 PILLS PER DAY 1AM + 1PM, MOUTH
     Route: 048
     Dates: start: 20171024
  4. LEVOTHYROXIN [Concomitant]
     Active Substance: LEVOTHYROXINE
  5. VITAMIN C [Concomitant]
     Active Substance: ASCORBIC ACID
  6. ROSE HIPS [Concomitant]
  7. ALLERGY RELIEF HCL [Concomitant]
  8. VITAMIN A [Concomitant]
     Active Substance: VITAMIN A
  9. WARFARIN [Concomitant]
     Active Substance: WARFARIN

REACTIONS (3)
  - Disturbance in attention [None]
  - Dizziness [None]
  - Asthenia [None]

NARRATIVE: CASE EVENT DATE: 20171024
